FAERS Safety Report 19181616 (Version 1)
Quarter: 2021Q2

REPORT INFORMATION
  Report Type: Spontaneous
  Country: EG (occurrence: EG)
  Receive Date: 20210426
  Receipt Date: 20210426
  Transmission Date: 20210717
  Serious: Yes (Other)
  Sender: FDA-Public Use
  Company Number: NVSC2021EG091632

PATIENT
  Age: 56 Year
  Sex: Female

DRUGS (2)
  1. OXALIPLATIN ^EBEWE^ [Suspect]
     Active Substance: OXALIPLATIN
     Indication: GASTRIC CANCER
     Dosage: 156 MG (OVER 6 HOURS) (XELOX CYCLE II)
     Route: 042
     Dates: start: 20210223
  2. OXALIPLATIN ^EBEWE^ [Interacting]
     Active Substance: OXALIPLATIN
     Dosage: 156 MG (OVER 6 HOURS) (XELOX CYCLE II)
     Route: 042

REACTIONS (3)
  - Hypersensitivity [Unknown]
  - Drug interaction [Unknown]
  - Respiratory failure [Recovered/Resolved]

NARRATIVE: CASE EVENT DATE: 202102
